FAERS Safety Report 4716433-X (Version None)
Quarter: 2005Q3

REPORT INFORMATION
  Report Type: 
  Country: None (occurrence: None)
  Receive Date: 20050719
  Receipt Date: 20050707
  Transmission Date: 20060218
  Serious: Yes (Death)
  Sender: FDA-Public Use
  Company Number: US-JNJFOC-20050701669

PATIENT
  Sex: Female

DRUGS (17)
  1. INFLIXIMAB [Suspect]
     Indication: RHEUMATOID ARTHRITIS
     Route: 042
  2. PREDNISONE [Concomitant]
     Dosage: DAILY
  3. METHOTREXATE [Concomitant]
     Dosage: WEEKLY
  4. BEXTRA [Concomitant]
     Dosage: DAILY
  5. MULTI-VITAMIN [Concomitant]
  6. MULTI-VITAMIN [Concomitant]
  7. MULTI-VITAMIN [Concomitant]
  8. MULTI-VITAMIN [Concomitant]
  9. MULTI-VITAMIN [Concomitant]
  10. MULTI-VITAMIN [Concomitant]
  11. MULTI-VITAMIN [Concomitant]
  12. MULTI-VITAMIN [Concomitant]
  13. FOSAMAX [Concomitant]
     Dosage: WEEKLY
  14. CALCIUM GLUCONATE [Concomitant]
     Dosage: DAILY
  15. FOLIC ACID [Concomitant]
     Dosage: 400MCG, DAILY
  16. ALLEGRA-D 12 HOUR [Concomitant]
  17. ALLEGRA-D 12 HOUR [Concomitant]
     Dosage: DAILY

REACTIONS (1)
  - LUNG NEOPLASM MALIGNANT [None]
